FAERS Safety Report 8956400 (Version 1)
Quarter: 2012Q4

REPORT INFORMATION
  Report Type: 
  Country: JP (occurrence: JP)
  Receive Date: 20121210
  Receipt Date: 20121210
  Transmission Date: 20130627
  Serious: Yes (Death, Hospitalization, Other)
  Sender: FDA-Public Use
  Company Number: JP-ELI_LILLY_AND_COMPANY-JP201206008017

PATIENT
  Age: 65 Year
  Sex: Male
  Weight: 59.2 kg

DRUGS (27)
  1. ALIMTA [Suspect]
     Indication: PLEURAL MESOTHELIOMA MALIGNANT
     Dosage: 760 mg, UNK
     Route: 042
     Dates: start: 20120312, end: 20120312
  2. CISPLATIN [Concomitant]
     Indication: PLEURAL MESOTHELIOMA MALIGNANT
     Dosage: 90 mg, UNK
     Route: 042
     Dates: start: 20120312, end: 20120312
  3. VITAMIN B12 [Concomitant]
     Dosage: 1 mg, UNK
     Route: 058
     Dates: start: 20120308
  4. PANVITAN [Concomitant]
     Dosage: 1 g, UNK
     Route: 048
     Dates: start: 20120308, end: 20120515
  5. OXYCONTIN [Concomitant]
     Indication: PAIN
     Dosage: 20 mg, UNK
     Route: 048
     Dates: start: 20120307
  6. OXYCONTIN [Concomitant]
     Dosage: 1 g, UNK
     Route: 048
     Dates: start: 20120308, end: 20120515
  7. ULCERLMIN [Concomitant]
     Dosage: 130 UNK, UNK
     Route: 048
     Dates: start: 20120307
  8. PARIET [Concomitant]
     Dosage: 10 mg, UNK
     Route: 048
     Dates: start: 20120307
  9. CRAVIT [Concomitant]
     Indication: INFECTION
     Dosage: 500 mg, UNK
     Route: 048
     Dates: start: 20120307, end: 20120312
  10. OXINORM [Concomitant]
     Indication: PAIN
     Dosage: 2.5 mg, prn
     Route: 048
     Dates: start: 20120307
  11. NOVAMIN [Concomitant]
     Dosage: 15 mg, UNK
     Route: 048
     Dates: start: 20120307, end: 20120321
  12. MAGLAX [Concomitant]
     Indication: CONSTIPATION
     Dosage: 750 mg, UNK
     Route: 048
     Dates: start: 20120308
  13. PREMINENT [Concomitant]
     Indication: HYPERTENSION
     Dosage: 1 DF, UNK
     Route: 048
     Dates: start: 20120308
  14. TERPERAN [Concomitant]
     Indication: NAUSEA
     Dosage: 15 mg, UNK
     Route: 048
     Dates: start: 20120319, end: 20120323
  15. MIYA-BM [Concomitant]
     Indication: DIARRHOEA
     Dosage: 120 mg, UNK
     Route: 048
     Dates: start: 20120319, end: 20120323
  16. ISODINE [Concomitant]
     Indication: PHARYNGITIS
     Dosage: UNK
     Dates: start: 20120321
  17. SULBACILLIN [Concomitant]
     Indication: INFECTION
     Dosage: 6 g, UNK
     Route: 042
     Dates: start: 20120309, end: 20120323
  18. LASIX [Concomitant]
     Indication: POLYURIA
     Dosage: 20 mg, UNK
     Route: 042
     Dates: start: 20120313, end: 20120316
  19. AMLODIPINE [Concomitant]
     Indication: HYPERTENSION
     Dosage: 5 mg, UNK
     Route: 048
     Dates: start: 20120308
  20. EXCEGRAN [Concomitant]
     Indication: PROPHYLAXIS
     Dosage: 200 mg, UNK
     Route: 048
     Dates: start: 20120308
  21. SODIUM CHLORIDE [Concomitant]
     Indication: HYPONATRAEMIA
     Dosage: 4.5 g, UNK
     Route: 048
     Dates: start: 20120309
  22. EMEND [Concomitant]
     Indication: PROPHYLAXIS OF NAUSEA AND VOMITING
     Dosage: 125 mg, UNK
     Route: 048
     Dates: start: 20120312, end: 201203
  23. EMEND [Concomitant]
     Dosage: 80 mg, UNK
     Route: 048
     Dates: start: 201203, end: 201203
  24. AMOBAN [Concomitant]
     Indication: INSOMNIA
     Dosage: 7.5 mg, prn
     Route: 048
     Dates: start: 20120310
  25. CONTOMIN [Concomitant]
     Indication: HICCUPS
     Dosage: 12.5 mg, UNK
     Route: 048
     Dates: start: 20120313, end: 20120313
  26. PURSENNID [Concomitant]
     Indication: CONSTIPATION
     Dosage: 12 mg, UNK
     Route: 048
     Dates: start: 20120315
  27. LOPEMIN [Concomitant]
     Indication: DIARRHOEA
     Dosage: 2 mg, UNK
     Route: 048
     Dates: start: 20120315, end: 20120320

REACTIONS (6)
  - Prerenal failure [Fatal]
  - Nephrotic syndrome [Unknown]
  - Interstitial lung disease [Recovered/Resolved with Sequelae]
  - Off label use [Unknown]
  - Neutropenia [Recovered/Resolved]
  - Rash [Recovering/Resolving]
